FAERS Safety Report 24664927 (Version 1)
Quarter: 2024Q4

REPORT INFORMATION
  Report Type: Spontaneous
  Country: TW (occurrence: TW)
  Receive Date: 20241126
  Receipt Date: 20241126
  Transmission Date: 20250114
  Serious: Yes (Other)
  Sender: MERCK
  Company Number: TW-009507513-2411TWN009566

PATIENT
  Sex: Female

DRUGS (1)
  1. KEYTRUDA [Suspect]
     Active Substance: PEMBROLIZUMAB
     Indication: Endometrial cancer stage II
     Dosage: UNK

REACTIONS (2)
  - Bell^s palsy [Unknown]
  - Neuritis [Unknown]
